FAERS Safety Report 5491349-2 (Version None)
Quarter: 2007Q4

REPORT INFORMATION
  Report Type: 
  Country: None (occurrence: None)
  Receive Date: 20071017
  Receipt Date: 20071002
  Transmission Date: 20080405
  Serious: No
  Sender: FDA-Public Use
  Company Number: DSA_27281_2005

PATIENT
  Age: 79 Year
  Sex: Male

DRUGS (2)
  1. DILTIAZEM [Suspect]
     Indication: HYPERTENSION
     Dosage: ORAL
     Route: 048
  2. VERAPAMIL [Suspect]
     Indication: HYPERTENSION

REACTIONS (2)
  - DRUG INTERACTION [None]
  - SKIN REACTION [None]
